FAERS Safety Report 8447625-4 (Version None)
Quarter: 2012Q2

REPORT INFORMATION
  Report Type: 
  Country: None (occurrence: None)
  Receive Date: 20120619
  Receipt Date: 20120608
  Transmission Date: 20120825
  Serious: Yes (Other)
  Sender: FDA-Public Use
  Company Number: US-PERRIGO-12US002988

PATIENT
  Sex: Female
  Weight: 78.912 kg

DRUGS (9)
  1. LETROZOLE [Concomitant]
     Indication: PRODUCT USED FOR UNKNOWN INDICATION
     Dosage: UNK
     Route: 048
  2. LORTAB [Concomitant]
     Indication: ARTHRALGIA
     Dosage: UNK
     Route: 065
     Dates: start: 20100101
  3. ALENDRONATE SODIUM [Concomitant]
     Indication: PRODUCT USED FOR UNKNOWN INDICATION
     Dosage: UNK
     Route: 048
  4. IBUPROFEN [Concomitant]
     Indication: PRODUCT USED FOR UNKNOWN INDICATION
     Dosage: 800MG
     Route: 048
  5. MUSCLE ULTR CRM 049 [Suspect]
     Indication: ARTHRALGIA
     Dosage: THIN LAYER COVERED KNEE AND LEG ON RIGHT LEG
     Route: 061
     Dates: start: 20120329, end: 20120329
  6. LISINOPRIL [Concomitant]
     Indication: PRODUCT USED FOR UNKNOWN INDICATION
     Dosage: 20MG
     Route: 048
  7. MECLIZINE [Concomitant]
     Indication: PRODUCT USED FOR UNKNOWN INDICATION
     Dosage: UNK
     Route: 048
  8. OXYBUTYNIN [Concomitant]
     Indication: PRODUCT USED FOR UNKNOWN INDICATION
     Dosage: UNK
     Route: 048
  9. POTASSIUM CHLORIDE [Concomitant]
     Indication: PRODUCT USED FOR UNKNOWN INDICATION
     Dosage: UNK
     Route: 065

REACTIONS (7)
  - APPLICATION SITE PAIN [None]
  - APPLICATION SITE VESICLES [None]
  - OEDEMA PERIPHERAL [None]
  - BURNS SECOND DEGREE [None]
  - PAIN [None]
  - HYPERSENSITIVITY [None]
  - APPLICATION SITE ERYTHEMA [None]
